FAERS Safety Report 21096805 (Version 1)
Quarter: 2022Q3

REPORT INFORMATION
  Report Type: Other
  Country: HU (occurrence: None)
  Receive Date: 20220718
  Receipt Date: 20220718
  Transmission Date: 20221027
  Serious: Yes (Other)
  Sender: FDA-Public Use
  Company Number: HU-ROCHE-3139714

PATIENT
  Age: 48 Year
  Sex: Female

DRUGS (1)
  1. COBIMETINIB [Suspect]
     Active Substance: COBIMETINIB
     Indication: Malignant melanoma
     Route: 048

REACTIONS (1)
  - Central serous chorioretinopathy [Recovered/Resolved]
